FAERS Safety Report 24811749 (Version 1)
Quarter: 2025Q1

REPORT INFORMATION
  Report Type: Spontaneous
  Country: US (occurrence: None)
  Receive Date: 20250106
  Receipt Date: 20250106
  Transmission Date: 20250409
  Serious: Yes (Other)
  Sender: FDA-CTU
  Company Number: None

PATIENT
  Age: 60 Year
  Sex: Female
  Weight: 103.5 kg

DRUGS (9)
  1. ZENATANE [Suspect]
     Active Substance: ISOTRETINOIN
     Indication: Hidradenitis
     Route: 048
     Dates: start: 20241216, end: 20241217
  2. OMEPRAZOLE [Concomitant]
     Active Substance: OMEPRAZOLE
  3. AMBIEN [Concomitant]
     Active Substance: ZOLPIDEM TARTRATE
  4. SPIRONOLACTONE [Concomitant]
     Active Substance: SPIRONOLACTONE
  5. DOXYCYCLINE [Concomitant]
     Active Substance: DOXYCYCLINE
  6. VITAMIN C [Concomitant]
     Active Substance: ASCORBIC ACID
  7. VITAMIN D [Concomitant]
     Active Substance: VITAMIN D NOS
  8. b12 [Concomitant]
  9. ASPIRIN [Concomitant]
     Active Substance: ASPIRIN

REACTIONS (10)
  - Rash erythematous [None]
  - Head discomfort [None]
  - Musculoskeletal discomfort [None]
  - Palpitations [None]
  - Tremor [None]
  - Headache [None]
  - Urticaria [None]
  - Swelling face [None]
  - Lip swelling [None]
  - Peripheral swelling [None]

NARRATIVE: CASE EVENT DATE: 20241216
